FAERS Safety Report 23201012 (Version 2)
Quarter: 2024Q4

REPORT INFORMATION
  Report Type: Spontaneous
  Country: JP (occurrence: JP)
  Receive Date: 20231118
  Receipt Date: 20241029
  Transmission Date: 20250115
  Serious: Yes (Other)
  Sender: AMGEN
  Company Number: JP-Vifor (International) Inc.-VIT-2023-07780

PATIENT
  Age: 62 Year
  Sex: Female
  Weight: 48.2 kg

DRUGS (20)
  1. TAVNEOS [Suspect]
     Active Substance: AVACOPAN
     Indication: Microscopic polyangiitis
     Dosage: UNK
     Route: 048
  2. PREDNISOLONE [Concomitant]
     Active Substance: PREDNISOLONE
     Indication: Microscopic polyangiitis
     Dosage: 0.6 MILLIGRAM/KILOGRAM
  3. PREDNISOLONE [Concomitant]
     Active Substance: PREDNISOLONE
     Dosage: 30 MILLIGRAM, QD
  4. PREDNISOLONE [Concomitant]
     Active Substance: PREDNISOLONE
     Dosage: 25 MILLIGRAM, QD
  5. PREDNISOLONE [Concomitant]
     Active Substance: PREDNISOLONE
     Dosage: 20 MILLIGRAM, QD
  6. PREDNISOLONE [Concomitant]
     Active Substance: PREDNISOLONE
     Dosage: 17.5 MILLIGRAM, QD
  7. PREDNISOLONE [Concomitant]
     Active Substance: PREDNISOLONE
     Dosage: 15 MILLIGRAM, QD
  8. PREDNISOLONE [Concomitant]
     Active Substance: PREDNISOLONE
     Dosage: 12.5 MILLIGRAM, QD
  9. PREDNISOLONE [Concomitant]
     Active Substance: PREDNISOLONE
     Dosage: 15 MILLIGRAM, QD
  10. PREDNISOLONE [Concomitant]
     Active Substance: PREDNISOLONE
     Dosage: 30 MILLIGRAM, QD
  11. PREDNISOLONE [Concomitant]
     Active Substance: PREDNISOLONE
     Dosage: 25 MILLIGRAM, QD
  12. PREDNISOLONE [Concomitant]
     Active Substance: PREDNISOLONE
     Dosage: 20 MILLIGRAM, QD
  13. PREDNISOLONE [Concomitant]
     Active Substance: PREDNISOLONE
     Dosage: 15 MILLIGRAM, QD
  14. NINTEDANIB [Concomitant]
     Active Substance: NINTEDANIB
     Indication: Microscopic polyangiitis
     Dosage: PERORAL MEDICINE
     Route: 048
  15. RITUXIMAB [Concomitant]
     Active Substance: RITUXIMAB
     Dosage: 540 MILLIGRAM
     Route: 040
  16. LANSOPRAZOLE [Concomitant]
     Active Substance: LANSOPRAZOLE
     Dosage: PERORAL MEDICINE
     Route: 048
  17. SULFAMETHOXAZOLE\TRIMETHOPRIM [Concomitant]
     Active Substance: SULFAMETHOXAZOLE\TRIMETHOPRIM
     Dosage: PERORAL MEDICINE
     Route: 048
  18. ELDECALCITOL [Concomitant]
     Active Substance: ELDECALCITOL
     Dosage: PERORAL MEDICINE
     Route: 048
  19. MINODRONIC ACID [Concomitant]
     Active Substance: MINODRONIC ACID
     Dosage: PERORAL MEDICINE
     Route: 048
  20. METHYLPREDNISOLONE [Concomitant]
     Active Substance: METHYLPREDNISOLONE
     Dosage: 1 GRAM

REACTIONS (1)
  - Interstitial lung disease [Unknown]
